FAERS Safety Report 16245004 (Version 1)
Quarter: 2019Q2

REPORT INFORMATION
  Report Type: Spontaneous
  Country: US (occurrence: US)
  Receive Date: 20190426
  Receipt Date: 20190426
  Transmission Date: 20190711
  Serious: Yes (Hospitalization, Other)
  Sender: FDA-Public Use
  Company Number: US-PFIZER INC-2019165146

PATIENT
  Age: 52 Year
  Sex: Female
  Weight: 91 kg

DRUGS (32)
  1. TACROLIMUS. [Interacting]
     Active Substance: TACROLIMUS
     Dosage: 4 MG, 2X/DAY
     Dates: start: 20030107
  2. TACROLIMUS. [Interacting]
     Active Substance: TACROLIMUS
     Dosage: 1 MG, 2X/DAY
     Dates: start: 20030517
  3. CIMETIDINE [Concomitant]
     Active Substance: CIMETIDINE
     Indication: DRUG LEVEL BELOW THERAPEUTIC
     Dosage: 400 MG, 1X/DAY (ADDED ON DAY 10)
     Route: 048
     Dates: start: 20021222, end: 20021223
  4. METOCLOPRAMIDE HCL [Suspect]
     Active Substance: METOCLOPRAMIDE HYDROCHLORIDE
     Indication: PYREXIA
     Dosage: 10 MG, 4X/DAY
     Dates: start: 20021227
  5. TACROLIMUS. [Interacting]
     Active Substance: TACROLIMUS
     Dosage: 20 MG, 2X/DAY
     Dates: start: 20030102
  6. SIROLIMUS. [Concomitant]
     Active Substance: SIROLIMUS
     Dosage: UNK
     Dates: end: 20030105
  7. ONDANSETRON [Concomitant]
     Active Substance: ONDANSETRON
     Dosage: 4 MG, 4X/DAY
  8. METRONIDAZOLE. [Concomitant]
     Active Substance: METRONIDAZOLE
     Dosage: UNK
  9. OMEPRAZOLE. [Concomitant]
     Active Substance: OMEPRAZOLE
     Dosage: 20 MG, 2X/DAY
  10. METOCLOPRAMIDE HCL [Interacting]
     Active Substance: METOCLOPRAMIDE HYDROCHLORIDE
     Indication: NAUSEA
     Dosage: 20 MG, 4X/DAY
     Dates: start: 20021231
  11. METOCLOPRAMIDE HCL [Interacting]
     Active Substance: METOCLOPRAMIDE HYDROCHLORIDE
     Indication: GASTRIC DISORDER
     Dosage: 20 MG, 2X/DAY (BEFORE MEALS AND AT BEDTIME)
     Dates: end: 20030226
  12. TACROLIMUS. [Interacting]
     Active Substance: TACROLIMUS
     Dosage: 14 MG, 2X/DAY
     Dates: start: 20021202
  13. TACROLIMUS. [Interacting]
     Active Substance: TACROLIMUS
     Dosage: 7 MG, DAILY (4 MG IN A.M.,3 MG IN P.M.)
     Dates: start: 20030124
  14. TACROLIMUS. [Interacting]
     Active Substance: TACROLIMUS
     Dosage: 3 MG, 2X/DAY
     Dates: start: 20030507
  15. SIROLIMUS. [Concomitant]
     Active Substance: SIROLIMUS
     Indication: IMMUNOSUPPRESSANT DRUG THERAPY
     Dosage: 4 MG, 1X/DAY
     Dates: start: 20021118
  16. ALENDRONATE [Concomitant]
     Active Substance: ALENDRONATE SODIUM
     Dosage: 70 MG, ONCE/WEEK
  17. PREDNISONE. [Concomitant]
     Active Substance: PREDNISONE
     Indication: TRANSPLANT REJECTION
     Dosage: 15 MG, 1X/DAY
  18. MYCOPHENOLATE MOFETIL. [Concomitant]
     Active Substance: MYCOPHENOLATE MOFETIL
     Indication: IMMUNOSUPPRESSANT DRUG THERAPY
     Dosage: 500 MG, 2X/DAY
  19. SIROLIMUS. [Concomitant]
     Active Substance: SIROLIMUS
     Dosage: 7.5 MG, 2X/DAY
     Dates: start: 20021215
  20. KETOCONAZOLE. [Concomitant]
     Active Substance: KETOCONAZOLE
     Indication: DRUG LEVEL BELOW THERAPEUTIC
     Dosage: 200 MG, 1X/DAY
     Dates: start: 20021223, end: 20030105
  21. TACROLIMUS. [Interacting]
     Active Substance: TACROLIMUS
     Indication: IMMUNOSUPPRESSANT DRUG THERAPY
     Dosage: 7 MG, 2X/DAY
     Dates: start: 20021118
  22. TACROLIMUS. [Interacting]
     Active Substance: TACROLIMUS
     Dosage: 28 MG, 2X/DAY
     Dates: start: 20021217
  23. LEVOFLOXACIN. [Concomitant]
     Active Substance: LEVOFLOXACIN
     Dosage: UNK
  24. METOCLOPRAMIDE HCL [Interacting]
     Active Substance: METOCLOPRAMIDE HYDROCHLORIDE
     Indication: VOMITING
     Dosage: 10 MG, 2X/DAY
     Dates: start: 20030111
  25. RIFAMPIN. [Concomitant]
     Active Substance: RIFAMPIN
     Indication: PRURITUS
     Dosage: 300 MG, 2X/DAY
     Dates: start: 20021218, end: 20021221
  26. URSODIOL. [Concomitant]
     Active Substance: URSODIOL
     Dosage: 600 MG, 2X/DAY
  27. PREDNISONE. [Concomitant]
     Active Substance: PREDNISONE
     Indication: IMMUNOSUPPRESSANT DRUG THERAPY
     Dosage: 60 MG, 1X/DAY
  28. ONDANSETRON [Concomitant]
     Active Substance: ONDANSETRON
     Dosage: 4 MG, 3X/DAY (EVERY 8 HOURS)
  29. RANITIDINE. [Concomitant]
     Active Substance: RANITIDINE
     Dosage: UNK
  30. METHYLPREDNISOLONE. [Concomitant]
     Active Substance: METHYLPREDNISOLONE
     Indication: TRANSPLANT REJECTION
     Dosage: 60 MG, UNK
     Route: 042
  31. TACROLIMUS. [Interacting]
     Active Substance: TACROLIMUS
     Dosage: 2 MG, 2X/DAY
     Dates: start: 20030516
  32. PANTOPRAZOLE [Concomitant]
     Active Substance: PANTOPRAZOLE
     Dosage: 40 MG, 1X/DAY

REACTIONS (6)
  - Renal tubular necrosis [Recovering/Resolving]
  - Immunosuppression [Unknown]
  - Drug level above therapeutic [Recovered/Resolved]
  - Drug interaction [Unknown]
  - Acute kidney injury [Recovering/Resolving]
  - Neurotoxicity [Unknown]
